FAERS Safety Report 4749992-1 (Version None)
Quarter: 2005Q3

REPORT INFORMATION
  Report Type: 
  Country: None (occurrence: None)
  Receive Date: 20050822
  Receipt Date: 20050520
  Transmission Date: 20060218
  Serious: Yes (Hospitalization, Disabling)
  Sender: FDA-Public Use
  Company Number: US-MERCK-0505USA02740

PATIENT
  Age: 32 Year
  Sex: Female
  Weight: 79 kg

DRUGS (10)
  1. VIOXX [Suspect]
     Indication: BACK PAIN
     Route: 048
     Dates: start: 20010101, end: 20040901
  2. BEXTRA [Suspect]
     Route: 065
  3. IBUPROFEN [Concomitant]
     Route: 065
  4. NAPROXEN [Concomitant]
     Route: 065
  5. PERCOCET [Concomitant]
     Route: 065
  6. CELEXA [Concomitant]
     Route: 065
  7. EFFEXOR [Concomitant]
     Route: 065
  8. ULTRAM [Concomitant]
     Route: 065
  9. LEXAPRO [Concomitant]
     Route: 065
  10. VICODIN [Concomitant]
     Route: 065

REACTIONS (7)
  - DRUG HYPERSENSITIVITY [None]
  - DYSPEPSIA [None]
  - FALLOPIAN TUBE DISORDER [None]
  - GASTROINTESTINAL DISORDER [None]
  - PHLEBITIS [None]
  - ROAD TRAFFIC ACCIDENT [None]
  - SPINAL FRACTURE [None]
